FAERS Safety Report 17106053 (Version 1)
Quarter: 2019Q4

REPORT INFORMATION
  Report Type: Spontaneous
  Country: FR (occurrence: FR)
  Receive Date: 20191203
  Receipt Date: 20191203
  Transmission Date: 20200122
  Serious: Yes (Death)
  Sender: FDA-Public Use
  Company Number: FR-MYLANLABS-2019M1116760

PATIENT
  Age: 61 Year
  Sex: Female
  Weight: 53 kg

DRUGS (4)
  1. NAVELBINE [Suspect]
     Active Substance: VINORELBINE TARTRATE
     Indication: LUNG ADENOCARCINOMA
     Dosage: UNK
     Route: 042
     Dates: start: 20190522, end: 20190529
  2. CISPLATIN. [Suspect]
     Active Substance: CISPLATIN
     Indication: LUNG ADENOCARCINOMA
     Dosage: 121.5 MILLIGRAM, Q3W
     Route: 042
     Dates: start: 20190522, end: 20190522
  3. KARDEGIC [Concomitant]
     Active Substance: ASPIRIN DL-LYSINE
     Dosage: 75 MILLIGRAM, QD
     Route: 048
  4. COAPROVEL [Concomitant]
     Active Substance: HYDROCHLOROTHIAZIDE\IRBESARTAN
     Dosage: 1 DOSAGE FORM, QD
     Route: 048

REACTIONS (1)
  - Posterior reversible encephalopathy syndrome [Fatal]

NARRATIVE: CASE EVENT DATE: 20190529
